FAERS Safety Report 15961847 (Version 4)
Quarter: 2019Q2

REPORT INFORMATION
  Report Type: Spontaneous
  Country: US (occurrence: US)
  Receive Date: 20190214
  Receipt Date: 20190425
  Transmission Date: 20190711
  Serious: Yes (Other)
  Sender: FDA-Public Use
  Company Number: US-ASTRAZENECA-2018SF14506

PATIENT
  Age: 23461 Day
  Sex: Female

DRUGS (39)
  1. NEXIUM 24HR [Suspect]
     Active Substance: ESOMEPRAZOLE MAGNESIUM
     Route: 048
     Dates: start: 20090527
  2. PRILOSEC OTC [Suspect]
     Active Substance: OMEPRAZOLE MAGNESIUM
     Route: 048
     Dates: start: 20070205
  3. PROTONIX [Suspect]
     Active Substance: PANTOPRAZOLE SODIUM
     Route: 065
     Dates: start: 20150423, end: 20160721
  4. BUMETANIDE. [Concomitant]
     Active Substance: BUMETANIDE
  5. VITAMIN D2 [Concomitant]
     Active Substance: ERGOCALCIFEROL
  6. LEVEMIR [Concomitant]
     Active Substance: INSULIN DETEMIR
  7. NEXIUM [Suspect]
     Active Substance: ESOMEPRAZOLE MAGNESIUM
     Indication: GASTROOESOPHAGEAL REFLUX DISEASE
     Route: 048
  8. PROTONIX [Suspect]
     Active Substance: PANTOPRAZOLE SODIUM
     Route: 065
     Dates: start: 20131015, end: 20140402
  9. NEXIUM [Suspect]
     Active Substance: ESOMEPRAZOLE MAGNESIUM
     Indication: GASTROOESOPHAGEAL REFLUX DISEASE
     Route: 048
     Dates: start: 20090303, end: 20090527
  10. NEXIUM 24HR [Suspect]
     Active Substance: ESOMEPRAZOLE MAGNESIUM
     Route: 048
  11. PRILOSEC [Suspect]
     Active Substance: OMEPRAZOLE MAGNESIUM
     Indication: GASTRITIS
     Route: 048
     Dates: end: 20000823
  12. HYDRALAZINE [Concomitant]
     Active Substance: HYDRALAZINE HYDROCHLORIDE
  13. RELPAX [Concomitant]
     Active Substance: ELETRIPTAN HYDROBROMIDE
  14. PROTONIX [Concomitant]
     Active Substance: PANTOPRAZOLE SODIUM
     Dates: start: 20110227
  15. CLONAZEPAM. [Concomitant]
     Active Substance: CLONAZEPAM
  16. CILOSTAZOL. [Concomitant]
     Active Substance: CILOSTAZOL
  17. PRILOSEC OTC [Suspect]
     Active Substance: OMEPRAZOLE MAGNESIUM
     Route: 048
     Dates: start: 20070205
  18. PROTONIX [Suspect]
     Active Substance: PANTOPRAZOLE SODIUM
     Route: 065
     Dates: start: 20100818, end: 20110216
  19. AMOXICILLIN. [Concomitant]
     Active Substance: AMOXICILLIN
  20. GLIPIZIDE. [Concomitant]
     Active Substance: GLIPIZIDE
  21. NEXIUM [Suspect]
     Active Substance: ESOMEPRAZOLE MAGNESIUM
     Indication: GASTROOESOPHAGEAL REFLUX DISEASE
     Route: 048
     Dates: start: 20050224, end: 20070205
  22. PREVACID IV [Suspect]
     Active Substance: LANSOPRAZOLE
     Route: 042
     Dates: start: 19980101, end: 20010101
  23. PROTONIX [Suspect]
     Active Substance: PANTOPRAZOLE SODIUM
     Route: 065
     Dates: start: 20090303, end: 20090609
  24. PROTONIX [Suspect]
     Active Substance: PANTOPRAZOLE SODIUM
     Route: 065
     Dates: start: 20120126, end: 20120919
  25. GABAPENTIN. [Concomitant]
     Active Substance: GABAPENTIN
  26. NEXIUM 24HR [Suspect]
     Active Substance: ESOMEPRAZOLE MAGNESIUM
     Route: 048
     Dates: start: 200008, end: 201709
  27. PRILOSEC [Suspect]
     Active Substance: OMEPRAZOLE MAGNESIUM
     Indication: GASTRITIS
     Route: 048
     Dates: start: 19980101, end: 20010101
  28. DEXILANT [Suspect]
     Active Substance: DEXLANSOPRAZOLE
  29. PREVACID [Suspect]
     Active Substance: LANSOPRAZOLE
     Route: 065
     Dates: start: 200008, end: 201709
  30. NEXIUM [Suspect]
     Active Substance: ESOMEPRAZOLE MAGNESIUM
     Indication: GASTROOESOPHAGEAL REFLUX DISEASE
     Route: 048
     Dates: start: 20150721
  31. ASPIRIN. [Concomitant]
     Active Substance: ASPIRIN
  32. WELCHOL [Concomitant]
     Active Substance: COLESEVELAM HYDROCHLORIDE
  33. DEXILANT [Concomitant]
     Active Substance: DEXLANSOPRAZOLE
     Dates: start: 20160721
  34. PRILOSEC [Suspect]
     Active Substance: OMEPRAZOLE MAGNESIUM
     Indication: PEPTIC ULCER
     Route: 048
     Dates: start: 19980101, end: 20010101
  35. PRILOSEC [Suspect]
     Active Substance: OMEPRAZOLE MAGNESIUM
     Indication: PEPTIC ULCER
     Route: 048
     Dates: end: 20000823
  36. MOBIC [Concomitant]
     Active Substance: MELOXICAM
  37. PLAVIX [Concomitant]
     Active Substance: CLOPIDOGREL BISULFATE
  38. VALSARTAN. [Concomitant]
     Active Substance: VALSARTAN
  39. AMLODIPINE BESYLATE. [Concomitant]
     Active Substance: AMLODIPINE BESYLATE

REACTIONS (3)
  - Renal injury [Unknown]
  - Chronic kidney disease [Not Recovered/Not Resolved]
  - Acute kidney injury [Not Recovered/Not Resolved]

NARRATIVE: CASE EVENT DATE: 20160623
